FAERS Safety Report 15565478 (Version 1)
Quarter: 2018Q4

REPORT INFORMATION
  Report Type: Report from Study
  Country: GB (occurrence: GB)
  Receive Date: 20181030
  Receipt Date: 20181030
  Transmission Date: 20190205
  Serious: Yes (Hospitalization, Other)
  Sender: FDA-Public Use
  Company Number: GB-EMD SERONO-8103748

PATIENT
  Sex: Female

DRUGS (1)
  1. REBIF [Suspect]
     Active Substance: INTERFERON BETA-1A
     Indication: MULTIPLE SCLEROSIS
     Dosage: DOSE: 6 MIU, PREFILLED SYRINGE
     Route: 058
     Dates: start: 20070523

REACTIONS (3)
  - Fall [Unknown]
  - Device allergy [Unknown]
  - Intervertebral disc protrusion [Unknown]
